FAERS Safety Report 7873599-0 (Version None)
Quarter: 2011Q4

REPORT INFORMATION
  Report Type: 
  Country: None (occurrence: None)
  Receive Date: 20111030
  Receipt Date: 20110506
  Transmission Date: 20120403
  Serious: No
  Sender: FDA-Public Use
  Company Number: US-AMGEN-USASP2011023717

PATIENT
  Sex: Female

DRUGS (1)
  1. ENBREL [Suspect]
     Indication: RHEUMATOID ARTHRITIS
     Dosage: UNK
     Dates: start: 20080202, end: 20110401

REACTIONS (5)
  - CHILLS [None]
  - PYREXIA [None]
  - SINUS CONGESTION [None]
  - PARANASAL SINUS HYPERSECRETION [None]
  - MALAISE [None]
